FAERS Safety Report 5066804-X (Version None)
Quarter: 2006Q3

REPORT INFORMATION
  Report Type: 
  Country: None (occurrence: None)
  Receive Date: 20060711
  Receipt Date: 20051208
  Transmission Date: 20061208
  Serious: Yes (Other)
  Sender: FDA-Public Use
  Company Number: 2005137201

PATIENT
  Age: 56 Year
  Sex: Female

DRUGS (3)
  1. ACCUPRIL [Suspect]
     Indication: BLOOD PRESSURE
  2. TOPROL-XL [Suspect]
     Indication: ILL-DEFINED DISORDER
  3. NORVASC [Suspect]
     Indication: BLOOD PRESSURE

REACTIONS (1)
  - HYPERSENSITIVITY [None]
